FAERS Safety Report 7326114-4 (Version None)
Quarter: 2011Q1

REPORT INFORMATION
  Report Type: 
  Country: None (occurrence: None)
  Receive Date: 20110302
  Receipt Date: 20110216
  Transmission Date: 20110831
  Serious: Yes (Hospitalization)
  Sender: FDA-Public Use
  Company Number: US-ROCHE-760993

PATIENT
  Sex: Female

DRUGS (3)
  1. AVASTIN [Suspect]
     Dosage: DATES OF USE: 1 YEAR TO DATE
     Route: 042
  2. OXALIPLATIN [Suspect]
     Dosage: DATES OF USE: 1 YEAR TO DATE
     Route: 042
  3. TAXOL [Suspect]
     Dosage: DATES OF USE: 1 YEAR TO DATE
     Route: 042

REACTIONS (2)
  - PERICARDITIS [None]
  - PLEURISY [None]
